FAERS Safety Report 11139729 (Version 1)
Quarter: 2015Q2

REPORT INFORMATION
  Report Type: Spontaneous
  Country: CN (occurrence: CN)
  Receive Date: 20150527
  Receipt Date: 20150527
  Transmission Date: 20150821
  Serious: Yes (Hospitalization)
  Sender: FDA-Public Use
  Company Number: CN-OTSUKA-2015_001227

PATIENT
  Age: 66 Year
  Sex: Female

DRUGS (1)
  1. OPC-13013 [Suspect]
     Active Substance: CILOSTAZOL
     Indication: INTERMITTENT CLAUDICATION
     Dosage: UNK
     Route: 048

REACTIONS (2)
  - Kounis syndrome [Recovered/Resolved]
  - Acute myocardial infarction [Recovered/Resolved]
